FAERS Safety Report 26055295 (Version 2)
Quarter: 2025Q4

REPORT INFORMATION
  Report Type: Spontaneous
  Country: VN (occurrence: VN)
  Receive Date: 20251117
  Receipt Date: 20251128
  Transmission Date: 20260117
  Serious: Yes (Hospitalization)
  Sender: NOVARTIS
  Company Number: VN-002147023-NVSC2025VN174395

PATIENT
  Age: 46 Month
  Sex: Female

DRUGS (3)
  1. CYCLOSPORINE [Suspect]
     Active Substance: CYCLOSPORINE
     Indication: Nephrotic syndrome
     Dosage: 3.50 MG/KG, QD
     Route: 048
  2. CYCLOSPORINE [Suspect]
     Active Substance: CYCLOSPORINE
     Dosage: 13.3 MG/KG, QD
     Route: 048
  3. PREDNISOLONE [Concomitant]
     Active Substance: PREDNISOLONE
     Indication: Nephrotic syndrome
     Dosage: UNK, QOD (ALTERNATE-DAY)
     Route: 065

REACTIONS (9)
  - Hypomagnesaemia [Recovering/Resolving]
  - Tetany [Recovered/Resolved]
  - Hypovolaemic shock [Recovering/Resolving]
  - Hypokalaemia [Recovering/Resolving]
  - Vomiting [Recovered/Resolved]
  - Diarrhoea [Recovered/Resolved]
  - Generalised oedema [Recovering/Resolving]
  - Hypoalbuminaemia [Unknown]
  - Hypertension [Unknown]
